FAERS Safety Report 13117002 (Version 4)
Quarter: 2017Q2

REPORT INFORMATION
  Report Type: Spontaneous
  Country: US (occurrence: US)
  Receive Date: 20170116
  Receipt Date: 20170607
  Transmission Date: 20170830
  Serious: Yes (Other)
  Sender: FDA-Public Use
  Company Number: US-ASTELLAS-2017US001169

PATIENT
  Age: 79 Year
  Sex: Male

DRUGS (1)
  1. XTANDI [Suspect]
     Active Substance: ENZALUTAMIDE
     Indication: PROSTATE CANCER
     Route: 048
     Dates: start: 20161012

REACTIONS (6)
  - Cough [Unknown]
  - Restless legs syndrome [Unknown]
  - Decreased appetite [Unknown]
  - Mental status changes [Unknown]
  - Tremor [Unknown]
  - Fatigue [Unknown]

NARRATIVE: CASE EVENT DATE: 20170103
